FAERS Safety Report 11749206 (Version 4)
Quarter: 2016Q2

REPORT INFORMATION
  Report Type: Spontaneous
  Country: US (occurrence: US)
  Receive Date: 20151118
  Receipt Date: 20160525
  Transmission Date: 20160815
  Serious: Yes (Other)
  Sender: FDA-Public Use
  Company Number: US-BEH-2015055795

PATIENT
  Age: 44 Year
  Sex: Female
  Weight: 121 kg

DRUGS (29)
  1. EPIPEN [Concomitant]
     Active Substance: EPINEPHRINE
  2. PHENTERMINE. [Concomitant]
     Active Substance: PHENTERMINE
  3. MAGNESIUM [Concomitant]
     Active Substance: MAGNESIUM
  4. ALLEGRA [Concomitant]
     Active Substance: FEXOFENADINE HYDROCHLORIDE
  5. SODIUM CHLORIDE. [Concomitant]
     Active Substance: SODIUM CHLORIDE
  6. METHOTREXATE [Concomitant]
     Active Substance: METHOTREXATE
  7. ALEVE [Concomitant]
     Active Substance: NAPROXEN SODIUM
  8. MONTELUKAST [Concomitant]
     Active Substance: MONTELUKAST SODIUM
  9. HYDROXYCHLOROQUINE SULFATE. [Concomitant]
     Active Substance: HYDROXYCHLOROQUINE SULFATE
  10. FLUOXETINE [Concomitant]
     Active Substance: FLUOXETINE HYDROCHLORIDE
  11. SPIRONOLACTONE. [Concomitant]
     Active Substance: SPIRONOLACTONE
  12. DIAZEPAM. [Concomitant]
     Active Substance: DIAZEPAM
  13. PROVENTIL [Concomitant]
     Active Substance: ALBUTEROL
  14. PRIVIGEN [Suspect]
     Active Substance: HUMAN IMMUNOGLOBULIN G
     Indication: CHRONIC INFLAMMATORY DEMYELINATING POLYRADICULONEUROPATHY
     Dosage: 20 GM VIALS
     Route: 042
  15. PRIVIGEN [Suspect]
     Active Substance: HUMAN IMMUNOGLOBULIN G
     Dosage: START DATE ALSO REPROTED AS 14-OCT-2015
     Route: 042
     Dates: start: 20151013
  16. NEXIUM [Concomitant]
     Active Substance: ESOMEPRAZOLE MAGNESIUM
  17. VITAMIN D2 [Concomitant]
     Active Substance: ERGOCALCIFEROL
  18. FAMOTIDINE. [Concomitant]
     Active Substance: FAMOTIDINE
  19. DIPHENHYDRAMINE. [Concomitant]
     Active Substance: DIPHENHYDRAMINE
  20. HEPARIN [Concomitant]
     Active Substance: HEPARIN SODIUM
  21. OLANZAPINE. [Concomitant]
     Active Substance: OLANZAPINE
  22. ASPIRIN. [Concomitant]
     Active Substance: ASPIRIN
  23. MOMETASONE FUROATE. [Concomitant]
     Active Substance: MOMETASONE FUROATE
  24. NYSTATIN. [Concomitant]
     Active Substance: NYSTATIN
  25. CELECOXIB. [Concomitant]
     Active Substance: CELECOXIB
  26. FOLIC ACID. [Concomitant]
     Active Substance: FOLIC ACID
  27. ACETAMINOPHEN. [Concomitant]
     Active Substance: ACETAMINOPHEN
  28. CYANOCOBALAMIN. [Concomitant]
     Active Substance: CYANOCOBALAMIN
  29. FLUCONAZOLE. [Concomitant]
     Active Substance: FLUCONAZOLE

REACTIONS (9)
  - Tachycardia [Unknown]
  - Headache [Recovered/Resolved]
  - Rash [Recovered/Resolved]
  - Administration site reaction [Recovered/Resolved]
  - Erythema [Unknown]
  - Thrombosis [Recovered/Resolved]
  - Pruritus [Recovered/Resolved]
  - Swelling face [Recovered/Resolved]
  - Fatigue [Unknown]

NARRATIVE: CASE EVENT DATE: 20151013
